FAERS Safety Report 6977959-1 (Version None)
Quarter: 2010Q3

REPORT INFORMATION
  Report Type: 
  Country: None (occurrence: None)
  Receive Date: 20100913
  Receipt Date: 20100903
  Transmission Date: 20110219
  Serious: Yes (Life-Threatening)
  Sender: FDA-Public Use
  Company Number: US-PFIZER INC-2010112047

PATIENT
  Sex: Male
  Weight: 89.796 kg

DRUGS (8)
  1. VIAGRA [Suspect]
     Indication: ERECTILE DYSFUNCTION
     Dosage: 25 MG, AS NEEDED
     Route: 048
     Dates: start: 20060201
  2. VIAGRA [Suspect]
     Dosage: 50 MG, UNK
     Dates: start: 20100201
  3. LITHIUM [Concomitant]
     Indication: BIPOLAR DISORDER
     Dosage: 600MG AM, 300MG PM
     Route: 048
  4. VALIUM [Concomitant]
     Indication: MUSCLE SPASMS
     Dosage: 10 MG, OCCASIONALLY
     Route: 048
  5. ATIVAN [Concomitant]
     Indication: ANXIETY
     Dosage: 0.5 MG, AS NEEDED
     Route: 048
  6. BUPROPION HYDROCHLORIDE [Concomitant]
     Indication: BIPOLAR DISORDER
     Dosage: 150 MG, 1X/DAY
     Route: 048
  7. ALLOPURINOL [Concomitant]
     Indication: GOUT
     Dosage: 300 MG, 1X/DAY
     Route: 048
  8. COLCHICINE [Concomitant]
     Indication: GOUT
     Dosage: 0.06 MG, 1X/DAY
     Route: 048

REACTIONS (3)
  - ACCIDENT [None]
  - DRUG INEFFECTIVE [None]
  - UPPER LIMB FRACTURE [None]
